FAERS Safety Report 9964138 (Version 3)
Quarter: 2014Q1

REPORT INFORMATION
  Report Type: Spontaneous
  Country: ES (occurrence: ES)
  Receive Date: 20140305
  Receipt Date: 20140327
  Transmission Date: 20141002
  Serious: Yes (Other)
  Sender: FDA-Public Use
  Company Number: ES-JNJFOC-20140217381

PATIENT
  Sex: 0

DRUGS (1)
  1. INFLIXIMAB, RECOMBINANT [Suspect]
     Indication: JUVENILE IDIOPATHIC ARTHRITIS
     Route: 042

REACTIONS (2)
  - Adverse drug reaction [Unknown]
  - Drug ineffective for unapproved indication [Unknown]
